FAERS Safety Report 4611485-X (Version None)
Quarter: 2005Q1

REPORT INFORMATION
  Report Type: 
  Country: None (occurrence: None)
  Receive Date: 20050317
  Receipt Date: 20041008
  Transmission Date: 20050727
  Serious: Yes (Hospitalization)
  Sender: FDA-Public Use
  Company Number: ES-ROCHE-382712

PATIENT
  Age: 71 Year
  Sex: Male

DRUGS (3)
  1. CAPECITABINE [Suspect]
     Dosage: PROTOCOL MANDATED DOSE = 1000MG/M2 TWICE PER DAY.
     Route: 048
     Dates: start: 20040520
  2. OXALIPLATIN [Suspect]
     Dosage: PROTOCOL MANDATED DOSE = 130MG/M2 ONCE PER 21 DAYS.
     Route: 042
     Dates: start: 20040520
  3. NEOTOMIZOL [Concomitant]
     Route: 048

REACTIONS (1)
  - PANCREATITIS ACUTE [None]
